FAERS Safety Report 12873014 (Version 2)
Quarter: 2016Q4

REPORT INFORMATION
  Report Type: Report from Study
  Country: US (occurrence: US)
  Receive Date: 20161021
  Receipt Date: 20161117
  Transmission Date: 20170207
  Serious: No
  Sender: FDA-Public Use
  Company Number: US-AMGEN-USASL2016142670

PATIENT
  Age: 52 Year
  Sex: Female

DRUGS (1)
  1. ENBREL [Suspect]
     Active Substance: ETANERCEPT
     Indication: PRODUCT USED FOR UNKNOWN INDICATION
     Dosage: UNK
     Route: 065

REACTIONS (10)
  - Injection site pain [Unknown]
  - Injection site haemorrhage [Unknown]
  - Headache [Unknown]
  - Heart rate increased [Unknown]
  - Head discomfort [Unknown]
  - Cough [Unknown]
  - Injection site mass [Unknown]
  - Injection site bruising [Unknown]
  - Jaw disorder [Unknown]
  - Paraesthesia [Unknown]
